FAERS Safety Report 5195380-6 (Version None)
Quarter: 2006Q4

REPORT INFORMATION
  Report Type: 
  Country: None (occurrence: None)
  Receive Date: 20061229
  Receipt Date: 20061222
  Transmission Date: 20070319
  Serious: Yes (Other)
  Sender: FDA-Public Use
  Company Number: DK-PFIZER INC-2006155429

PATIENT
  Age: 14 Year
  Sex: Female

DRUGS (1)
  1. SERTRALINE [Suspect]
     Route: 048

REACTIONS (13)
  - ANXIETY [None]
  - CONVULSION [None]
  - DIZZINESS [None]
  - DRY MOUTH [None]
  - DYSPNOEA [None]
  - ERYTHEMA [None]
  - FEELING HOT [None]
  - HEADACHE [None]
  - HEART RATE INCREASED [None]
  - LOSS OF CONSCIOUSNESS [None]
  - MUSCLE SPASMS [None]
  - PULSE PRESSURE INCREASED [None]
  - TREMOR [None]
